FAERS Safety Report 24314756 (Version 1)
Quarter: 2024Q3

REPORT INFORMATION
  Report Type: Spontaneous
  Country: US (occurrence: US)
  Receive Date: 20240913
  Receipt Date: 20240913
  Transmission Date: 20241016
  Serious: No
  Sender: AUROBINDO
  Company Number: US-AUROBINDO-AUR-APL-2024-030212

PATIENT
  Age: 73 Year
  Sex: Male
  Weight: 98.88 kg

DRUGS (1)
  1. CARBIDOPA\LEVODOPA [Suspect]
     Active Substance: CARBIDOPA\LEVODOPA
     Indication: Parkinson^s disease
     Dosage: UNK, 08 PILLS A DAY (02 PILLS 04 TIMES A DAY)
     Route: 065
     Dates: start: 20240520, end: 20240608

REACTIONS (8)
  - Arthralgia [Unknown]
  - Chest pain [Unknown]
  - Headache [Unknown]
  - Illness [Unknown]
  - Insomnia [Unknown]
  - Neck pain [Unknown]
  - Condition aggravated [Unknown]
  - Drug ineffective [Unknown]

NARRATIVE: CASE EVENT DATE: 20240607
